FAERS Safety Report 4678997-4 (Version None)
Quarter: 2005Q2

REPORT INFORMATION
  Report Type: 
  Country: None (occurrence: None)
  Receive Date: 20050531
  Receipt Date: 20050518
  Transmission Date: 20051028
  Serious: Yes (Other)
  Sender: FDA-Public Use
  Company Number: WAES 0504USA00516

PATIENT
  Age: 65 Year
  Sex: Female

DRUGS (9)
  1. FOSAMAX [Suspect]
     Indication: OSTEOPOROSIS
     Dosage: 5 MG/DAILY PO
     Route: 048
     Dates: start: 20030925, end: 20040113
  2. TAB LOXONIN (LOXOPROFEN SODIUM) [Suspect]
     Indication: RHEUMATOID ARTHRITIS
     Dosage: 180 MG/ DAILY PO
     Route: 048
     Dates: start: 20030925, end: 20040129
  3. TAB LOXONIN (LOXOPROFEN SODIUM) [Suspect]
     Indication: RHEUMATOID ARTHRITIS
     Dosage: PO
     Route: 048
     Dates: start: 20040408
  4. GASTER [Concomitant]
  5. MUCOSTA [Concomitant]
  6. RHEUMATREX [Concomitant]
  7. ELCATONIN [Concomitant]
  8. HYALURONATE SODIUM [Concomitant]
  9. PREDNISOLONE [Concomitant]

REACTIONS (4)
  - ANAEMIA [None]
  - BLOOD ALKALINE PHOSPHATASE INCREASED [None]
  - BLOOD CREATININE DECREASED [None]
  - GASTRIC ULCER HAEMORRHAGE [None]
